FAERS Safety Report 8478746-8 (Version None)
Quarter: 2012Q2

REPORT INFORMATION
  Report Type: 
  Country: None (occurrence: None)
  Receive Date: 20120629
  Receipt Date: 20120619
  Transmission Date: 20120825
  Serious: Yes (Hospitalization)
  Sender: FDA-Public Use
  Company Number: US-JNJFOC-20120405079

PATIENT
  Sex: Male
  Weight: 46.2 kg

DRUGS (12)
  1. REMICADE [Suspect]
     Indication: CROHN'S DISEASE
     Route: 042
     Dates: start: 20120413
  2. ANTIBIOTICS [Concomitant]
     Indication: INFLAMMATORY BOWEL DISEASE
  3. IRON [Concomitant]
  4. REMICADE [Suspect]
     Route: 042
     Dates: start: 20110929
  5. METHOTREXATE [Concomitant]
  6. FLAGYL [Concomitant]
  7. FOLIC ACID [Concomitant]
  8. FERRLECIT [Concomitant]
  9. NEXIUM [Concomitant]
  10. ZOFRAN [Concomitant]
  11. PERIACTIN [Concomitant]
  12. IRON [Concomitant]
     Dates: start: 20120413

REACTIONS (1)
  - CROHN'S DISEASE [None]
